FAERS Safety Report 14879823 (Version 1)
Quarter: 2018Q2

REPORT INFORMATION
  Report Type: Spontaneous
  Country: DE (occurrence: DE)
  Receive Date: 20180511
  Receipt Date: 20180511
  Transmission Date: 20180711
  Serious: Yes (Other)
  Sender: FDA-Public Use
  Company Number: DE-BAYER-2018-087213

PATIENT
  Age: 24 Year
  Sex: Female

DRUGS (1)
  1. ASPIRIN. [Suspect]
     Active Substance: ASPIRIN

REACTIONS (13)
  - Pallor [None]
  - Nausea [None]
  - Dizziness [None]
  - Dry mouth [None]
  - Tinnitus [None]
  - Dry throat [None]
  - Arrhythmia [None]
  - Intentional product misuse [None]
  - Feeling hot [None]
  - Disturbance in attention [None]
  - Pulse abnormal [None]
  - Overdose [None]
  - Tachycardia [None]
